FAERS Safety Report 18600383 (Version 3)
Quarter: 2021Q1

REPORT INFORMATION
  Report Type: Spontaneous
  Country: US (occurrence: US)
  Receive Date: 20201210
  Receipt Date: 20210113
  Transmission Date: 20210419
  Serious: No
  Sender: FDA-Public Use
  Company Number: US-SA-2020SA350448

PATIENT
  Age: 65 Year
  Sex: Female

DRUGS (2)
  1. ENOXAPARIN SODIUM ? WINTHROP [Suspect]
     Active Substance: ENOXAPARIN SODIUM
     Indication: DEEP VEIN THROMBOSIS
     Dosage: 80 MG, BID
     Route: 065
     Dates: start: 20201109
  2. ENOXAPARIN SODIUM ? WINTHROP [Suspect]
     Active Substance: ENOXAPARIN SODIUM
     Dosage: 60 MG, BID
     Route: 065

REACTIONS (3)
  - Injection site pain [Not Recovered/Not Resolved]
  - Needle issue [Not Recovered/Not Resolved]
  - Vaginal haemorrhage [Not Recovered/Not Resolved]
